FAERS Safety Report 14900209 (Version 1)
Quarter: 2018Q2

REPORT INFORMATION
  Report Type: Spontaneous
  Country: FR (occurrence: FR)
  Receive Date: 20180516
  Receipt Date: 20180516
  Transmission Date: 20180711
  Serious: Yes (Other)
  Sender: FDA-Public Use
  Company Number: FR-MERCK KGAA-2047902

PATIENT
  Age: 43 Year
  Sex: Female

DRUGS (1)
  1. NOVOTHYROX [Suspect]
     Active Substance: LEVOTHYROXINE SODIUM
     Indication: PRODUCT USED FOR UNKNOWN INDICATION
     Dates: start: 20170506

REACTIONS (32)
  - Tremor [Recovered/Resolved]
  - Apathy [Recovered/Resolved]
  - Fatigue [Recovered/Resolved]
  - Feeling abnormal [None]
  - Musculoskeletal chest pain [Recovered/Resolved]
  - Alopecia [Recovered/Resolved]
  - Suicidal ideation [None]
  - Impatience [None]
  - Social avoidant behaviour [None]
  - Gastrointestinal pain [Recovered/Resolved]
  - Insomnia [Recovered/Resolved]
  - Muscle spasms [None]
  - Hypoaesthesia [None]
  - Migraine [None]
  - Psychiatric symptom [None]
  - Movement disorder [None]
  - Anxiety [None]
  - Dizziness [None]
  - Pruritus [Recovered/Resolved]
  - Dyspnoea [Recovered/Resolved]
  - Irritability [None]
  - Mental fatigue [None]
  - Confusional state [None]
  - Disturbance in attention [None]
  - Weight decreased [Recovered/Resolved]
  - Nausea [None]
  - Night sweats [Recovered/Resolved]
  - Diarrhoea [None]
  - Dyspepsia [None]
  - Vomiting [None]
  - Feeling of body temperature change [Recovered/Resolved]
  - Palpitations [Recovered/Resolved]

NARRATIVE: CASE EVENT DATE: 2017
